FAERS Safety Report 8215146-X (Version None)
Quarter: 2012Q1

REPORT INFORMATION
  Report Type: 
  Country: None (occurrence: None)
  Receive Date: 20120316
  Receipt Date: 20120306
  Transmission Date: 20120608
  Serious: Yes (Hospitalization)
  Sender: FDA-Public Use
  Company Number: US-ELI_LILLY_AND_COMPANY-US201010006776

PATIENT
  Sex: Female

DRUGS (11)
  1. CALCIUM [Concomitant]
  2. FORTEO [Suspect]
     Indication: OSTEOPOROSIS
     Dosage: 20 UG, DAILY (1/D)
  3. LIPITOR [Concomitant]
  4. CELEBREX [Concomitant]
  5. VITAMIN E                            /001105/ [Concomitant]
  6. PREDNISONE TAB [Concomitant]
  7. FISH OIL [Concomitant]
  8. METHOTREXATE [Concomitant]
     Dosage: UNK, WEEKLY (1/W)
  9. FOLIC ACID [Concomitant]
  10. VITAMIN D [Concomitant]
  11. FORTEO [Suspect]
     Dosage: 20 UG, DAILY (1/D)

REACTIONS (3)
  - CHOLECYSTECTOMY [None]
  - MUSCULOSKELETAL STIFFNESS [None]
  - PAIN [None]
